FAERS Safety Report 9931849 (Version 1)
Quarter: 2014Q1

REPORT INFORMATION
  Report Type: Spontaneous
  Country: US (occurrence: None)
  Receive Date: 20140227
  Receipt Date: 20140227
  Transmission Date: 20141002
  Serious: Yes (Other)
  Sender: FDA-Public Use
  Company Number: None

PATIENT
  Age: 74 Year
  Sex: Female
  Weight: 68.95 kg

DRUGS (1)
  1. LEVAQUIN [Suspect]
     Indication: BRONCHITIS
     Dosage: 1 PILL ONCE DAILY
     Route: 048
     Dates: start: 20140124, end: 20140126

REACTIONS (4)
  - Epicondylitis [None]
  - Pain in extremity [None]
  - Muscular weakness [None]
  - Back pain [None]
